APPROVED DRUG PRODUCT: PAREMYD
Active Ingredient: HYDROXYAMPHETAMINE HYDROBROMIDE; TROPICAMIDE
Strength: 1%;0.25%
Dosage Form/Route: SOLUTION/DROPS;OPHTHALMIC
Application: N019261 | Product #001
Applicant: EPIC PHARMA LLC
Approved: Jan 30, 1992 | RLD: Yes | RS: No | Type: DISCN